FAERS Safety Report 15178541 (Version 1)
Quarter: 2018Q3

REPORT INFORMATION
  Report Type: Spontaneous
  Country: US (occurrence: US)
  Receive Date: 20180722
  Receipt Date: 20180722
  Transmission Date: 20181010
  Serious: No
  Sender: FDA-Public Use
  Company Number: US-009507513-1512USA007461

PATIENT
  Age: 35 Year
  Sex: Female

DRUGS (4)
  1. ISENTRESS [Suspect]
     Active Substance: RALTEGRAVIR POTASSIUM
     Dosage: 800, UNK, QD
     Route: 048
     Dates: start: 2014
  2. ZIDOVUDINE. [Suspect]
     Active Substance: ZIDOVUDINE
     Dosage: 1, UNK, QD
     Dates: start: 2014, end: 2014
  3. ZIDOVUDINE. [Suspect]
     Active Substance: ZIDOVUDINE
     Dosage: 2, UNK, QD
     Route: 042
     Dates: start: 2014, end: 2014
  4. EMTRICITABINE (+) RILPIVIRINE HYDROCHLORIDE (+) TENOFOVIR DISOPROXIL F [Suspect]
     Active Substance: EMTRICITABINE\RILPIVIRINE HYDROCHLORIDE\TENOFOVIR DISOPROXIL FUMARATE
     Dosage: 525, UNK, QD
     Route: 048
     Dates: start: 2014

REACTIONS (2)
  - Maternal exposure during pregnancy [Recovered/Resolved]
  - No adverse event [Unknown]
